FAERS Safety Report 8063235-5 (Version None)
Quarter: 2012Q1

REPORT INFORMATION
  Report Type: 
  Country: None (occurrence: None)
  Receive Date: 20120123
  Receipt Date: 20120117
  Transmission Date: 20120608
  Serious: Yes (Other)
  Sender: FDA-Public Use
  Company Number: PHHY2011CA35695

PATIENT
  Sex: Female

DRUGS (8)
  1. VITAMIN D [Concomitant]
     Dosage: 1000 MG, QD
  2. ZOLEDRONOC ACID [Suspect]
     Indication: OSTEOPOROSIS
     Dosage: 5 MG
     Route: 042
     Dates: start: 20110302, end: 20110302
  3. OMEPRAZOLE [Concomitant]
     Dosage: 20 MG, QD
  4. LEVOTHYROXINE SODIUM [Concomitant]
     Dosage: 10 MG, QD
  5. ASPIRIN [Concomitant]
     Dosage: 81 MG, QD
  6. CRESTOR [Concomitant]
  7. CALCIUM [Concomitant]
     Dosage: 800 MG, BID
  8. ATIVAN [Concomitant]
     Dosage: 2 MG, UNK

REACTIONS (4)
  - VOMITING [None]
  - NAUSEA [None]
  - PAIN IN EXTREMITY [None]
  - HAEMATEMESIS [None]
